FAERS Safety Report 8747459 (Version 2)
Quarter: 2012Q4

REPORT INFORMATION
  Report Type: 
  Country: US (occurrence: US)
  Receive Date: 20120827
  Receipt Date: 20120925
  Transmission Date: 20130627
  Serious: Yes (Other)
  Sender: FDA-Public Use
  Company Number: US-PFIZER INC-2012206723

PATIENT
  Age: 72 Year
  Sex: Female
  Weight: 75.28 kg

DRUGS (2)
  1. LYRICA [Suspect]
     Indication: FIBROMYALGIA
     Dosage: 150 mg, once
     Dates: start: 20120820, end: 20120820
  2. BENAZEPRIL [Concomitant]
     Indication: HYPERTENSION
     Dosage: 40 mg, daily

REACTIONS (7)
  - Activities of daily living impaired [Recovering/Resolving]
  - Swelling face [Recovering/Resolving]
  - Middle insomnia [Recovering/Resolving]
  - Headache [Recovering/Resolving]
  - Sleep disorder [Recovering/Resolving]
  - Somnolence [Recovering/Resolving]
  - Dizziness [Recovering/Resolving]
